FAERS Safety Report 9125155 (Version 2)
Quarter: 2013Q1

REPORT INFORMATION
  Report Type: Spontaneous
  Country: JP (occurrence: JP)
  Receive Date: 20130121
  Receipt Date: 20130306
  Transmission Date: 20140127
  Serious: Yes (Hospitalization)
  Sender: FDA-Public Use
  Company Number: PHHY2013JP004712

PATIENT
  Age: 51 Year
  Sex: Female

DRUGS (2)
  1. TACROLIMUS [Suspect]
     Indication: DERMATOMYOSITIS
     Dosage: 3 MG, PER DAY
  2. PREDNISOLONE [Suspect]
     Dosage: 50 MG, PER DAY

REACTIONS (14)
  - Scleroderma renal crisis [Unknown]
  - Haematuria [Unknown]
  - Proteinuria [Unknown]
  - Renal impairment [Recovering/Resolving]
  - Dyspnoea exertional [Unknown]
  - Posterior reversible encephalopathy syndrome [Unknown]
  - Oedema [Unknown]
  - Blood pressure increased [Unknown]
  - Headache [Unknown]
  - Visual impairment [Unknown]
  - Faecal incontinence [Unknown]
  - Tonic convulsion [Unknown]
  - Loss of consciousness [Recovering/Resolving]
  - Thrombotic thrombocytopenic purpura [Recovering/Resolving]
